FAERS Safety Report 19051162 (Version 3)
Quarter: 2022Q4

REPORT INFORMATION
  Report Type: Report from Study
  Country: CA (occurrence: CA)
  Receive Date: 20210323
  Receipt Date: 20221011
  Transmission Date: 20230113
  Serious: Yes (Hospitalization)
  Sender: FDA-Public Use
  Company Number: CA-ABBVIE-21K-028-3823688-00

PATIENT
  Sex: Male

DRUGS (1)
  1. HUMIRA [Suspect]
     Active Substance: ADALIMUMAB
     Indication: Crohn^s disease
     Route: 058
     Dates: start: 20201214

REACTIONS (6)
  - Intestinal obstruction [Unknown]
  - Obstruction [Recovered/Resolved]
  - Stenosis [Unknown]
  - Injection site pain [Not Recovered/Not Resolved]
  - Large intestinal ulcer [Unknown]
  - Large intestinal stenosis [Unknown]
